FAERS Safety Report 9229088 (Version 1)
Quarter: 2013Q2

REPORT INFORMATION
  Report Type: Spontaneous
  Country: CA (occurrence: CA)
  Receive Date: 20130412
  Receipt Date: 20130412
  Transmission Date: 20140414
  Serious: Yes (Hospitalization, Other)
  Sender: FDA-Public Use
  Company Number: CA-ELI_LILLY_AND_COMPANY-CA201304001736

PATIENT
  Age: 87 Year
  Sex: Female

DRUGS (9)
  1. FORTEO [Suspect]
     Indication: HYPOPARATHYROIDISM
     Dosage: 20 UG, QD
     Route: 058
     Dates: start: 20130312, end: 20130326
  2. FORTEO [Suspect]
     Dosage: 20 UG, QD
     Route: 058
     Dates: start: 20130404
  3. RENAGEL [Concomitant]
     Dosage: UNK
  4. TUMS                               /00193601/ [Concomitant]
     Dosage: UNK
  5. ROCALTROL [Concomitant]
     Dosage: UNK
  6. ARICEPT [Concomitant]
     Dosage: UNK
  7. NORVASC [Concomitant]
     Dosage: UNK
  8. AVAPRO [Concomitant]
     Dosage: UNK
  9. HYDROCHLOROTHIAZIDE [Concomitant]
     Dosage: UNK

REACTIONS (2)
  - Hip fracture [Not Recovered/Not Resolved]
  - Off label use [Unknown]
